FAERS Safety Report 4665241-7 (Version None)
Quarter: 2005Q2

REPORT INFORMATION
  Report Type: 
  Country: None (occurrence: None)
  Receive Date: 20050517
  Receipt Date: 20050504
  Transmission Date: 20051028
  Serious: Yes (Hospitalization)
  Sender: FDA-Public Use
  Company Number: US_0503114029

PATIENT
  Age: 58 Year
  Sex: Female
  Weight: 44 kg

DRUGS (11)
  1. TERIPARATIDE [Suspect]
     Indication: OSTEOPOROSIS
     Dosage: 20 UG/1 DAY
     Dates: start: 20040603
  2. METHOTREXATE [Concomitant]
  3. METHYLPREDNISOLONE [Concomitant]
  4. ADVAIR DISKUS 100/50 [Concomitant]
  5. NEURONTIN (GABAPENTIN PFIZER) [Concomitant]
  6. ALBUTEROL [Concomitant]
  7. LOMOTIL [Concomitant]
  8. SINGULAIR (MONTELUKAST) [Concomitant]
  9. ATACAND [Concomitant]
  10. PLAVIX [Concomitant]
  11. FOLIC ACID [Concomitant]

REACTIONS (11)
  - HEADACHE [None]
  - HEART RATE INCREASED [None]
  - HYPOAESTHESIA [None]
  - OEDEMA PERIPHERAL [None]
  - PNEUMONIA [None]
  - PULMONARY EOSINOPHILIA [None]
  - RASH ERYTHEMATOUS [None]
  - RED BLOOD CELL SEDIMENTATION RATE INCREASED [None]
  - TENOSYNOVITIS [None]
  - VOMITING [None]
  - WHITE BLOOD CELL COUNT INCREASED [None]
